FAERS Safety Report 10288592 (Version 3)
Quarter: 2015Q3

REPORT INFORMATION
  Report Type: Spontaneous
  Country: US (occurrence: US)
  Receive Date: 20140709
  Receipt Date: 20150817
  Transmission Date: 20151125
  Serious: No
  Sender: FDA-Public Use
  Company Number: US-GILEAD-2013-0085780

PATIENT
  Age: 44 Year
  Sex: Female

DRUGS (5)
  1. REVATIO [Concomitant]
     Active Substance: SILDENAFIL CITRATE
  2. LETAIRIS [Suspect]
     Active Substance: AMBRISENTAN
     Indication: PRODUCT USED FOR UNKNOWN INDICATION
     Dosage: 10 MG, UNK
     Route: 048
     Dates: start: 20101111
  3. VENTAVIS [Concomitant]
     Active Substance: ILOPROST
  4. VALTREX [Concomitant]
     Active Substance: VALACYCLOVIR HYDROCHLORIDE
  5. COUMADIN [Concomitant]
     Active Substance: WARFARIN SODIUM

REACTIONS (8)
  - Migraine [Unknown]
  - Dizziness [Unknown]
  - Throat irritation [Unknown]
  - Herpes zoster [Unknown]
  - Dehydration [Unknown]
  - Oedema [Unknown]
  - Flushing [Unknown]
  - Gait disturbance [Unknown]
